FAERS Safety Report 9795992 (Version 1)
Quarter: 2014Q1

REPORT INFORMATION
  Report Type: Spontaneous
  Country: FR (occurrence: FR)
  Receive Date: 20140103
  Receipt Date: 20140103
  Transmission Date: 20141002
  Serious: Yes (Death)
  Sender: FDA-Public Use
  Company Number: FR-CUBIST PHARMACEUTICAL, INC.-2013CBST001415

PATIENT
  Sex: 0

DRUGS (3)
  1. CUBICIN [Suspect]
     Indication: ENDOCARDITIS
     Dosage: 5 MG/KG, QD
     Route: 065
  2. CUBICIN [Suspect]
     Indication: OFF LABEL USE
  3. GENTAMICIN [Concomitant]
     Indication: ENDOCARDITIS
     Dosage: UNK UNK, UNK
     Route: 065

REACTIONS (2)
  - Haemodynamic instability [Fatal]
  - Drug ineffective for unapproved indication [Unknown]
